FAERS Safety Report 8338522 (Version 5)
Quarter: 2015Q4

REPORT INFORMATION
  Report Type: Spontaneous
  Country: US (occurrence: US)
  Receive Date: 20120117
  Receipt Date: 20151009
  Transmission Date: 20160305
  Serious: Yes (Death, Hospitalization, Congenital Anomaly, Other)
  Sender: FDA-Public Use
  Company Number: US-PFIZER INC-2012011087

PATIENT
  Sex: Male
  Weight: 3.95 kg

DRUGS (13)
  1. ZOLOFT [Suspect]
     Active Substance: SERTRALINE HYDROCHLORIDE
     Indication: BIPOLAR DISORDER
     Dosage: 100 MG, 2X/DAY
     Route: 064
     Dates: start: 1999, end: 1999
  2. TRAZODONE [Concomitant]
     Active Substance: TRAZODONE HYDROCHLORIDE
     Indication: SLEEP DISORDER
     Dosage: 100 MG, UNK
     Route: 064
  3. ACTOS [Concomitant]
     Active Substance: PIOGLITAZONE HYDROCHLORIDE
     Indication: TYPE 2 DIABETES MELLITUS
     Dosage: 15 MG, UNK
     Route: 064
  4. TYLENOL [Suspect]
     Active Substance: ACETAMINOPHEN
     Dosage: UNK
     Route: 050
  5. CYMBALTA [Concomitant]
     Active Substance: DULOXETINE HYDROCHLORIDE
     Dosage: UNK
     Route: 064
  6. HUMULIN 70/30 [Concomitant]
     Active Substance: INSULIN HUMAN
     Indication: TYPE 2 DIABETES MELLITUS
     Dosage: UNK, TWO TIMES A DAY
     Route: 064
  7. ZOLOFT [Suspect]
     Active Substance: SERTRALINE HYDROCHLORIDE
     Indication: DEPRESSION
     Dosage: 100 MG, 1X/DAY
     Route: 064
     Dates: start: 1998, end: 1999
  8. SEROQUEL [Concomitant]
     Active Substance: QUETIAPINE FUMARATE
     Indication: SLEEP DISORDER
     Dosage: 300 MG, UNK
     Route: 064
  9. ZOLOFT [Suspect]
     Active Substance: SERTRALINE HYDROCHLORIDE
     Indication: BIPOLAR I DISORDER
     Dosage: 100 MG, 3X/DAY
     Route: 064
     Dates: start: 1999
  10. ZOLOFT [Suspect]
     Active Substance: SERTRALINE HYDROCHLORIDE
     Dosage: 100 MG, UNK
     Route: 064
     Dates: end: 200212
  11. ASPIRIN. [Suspect]
     Active Substance: ASPIRIN
     Dosage: UNK
     Route: 050
  12. LISINOPRIL. [Concomitant]
     Active Substance: LISINOPRIL
     Indication: HYPERTENSION
     Dosage: UNK
     Route: 064
  13. GLYBURIDE. [Concomitant]
     Active Substance: GLYBURIDE
     Indication: TYPE 2 DIABETES MELLITUS
     Dosage: 60 MG, UNK
     Route: 064

REACTIONS (16)
  - Exposure via father [Not Recovered/Not Resolved]
  - Skull malformation [Recovered/Resolved with Sequelae]
  - Congenital eye disorder [Not Recovered/Not Resolved]
  - Cleft palate [Recovered/Resolved with Sequelae]
  - Feeding disorder [Unknown]
  - Migraine [Not Recovered/Not Resolved]
  - Dyspnoea [Unknown]
  - Activities of daily living impaired [Unknown]
  - Headache [Not Recovered/Not Resolved]
  - Nose deformity [Not Recovered/Not Resolved]
  - Sepsis [Fatal]
  - Seizure [Unknown]
  - Gait disturbance [Unknown]
  - Maternal exposure during pregnancy [Not Recovered/Not Resolved]
  - Congenital anomaly [Recovered/Resolved with Sequelae]
  - Foetal damage [Unknown]

NARRATIVE: CASE EVENT DATE: 2001
